FAERS Safety Report 17819024 (Version 3)
Quarter: 2020Q3

REPORT INFORMATION
  Report Type: Spontaneous
  Country: FR (occurrence: FR)
  Receive Date: 20200523
  Receipt Date: 20200702
  Transmission Date: 20201102
  Serious: Yes (Hospitalization, Other)
  Sender: FDA-Public Use
  Company Number: FR-ABBVIE-20K-056-3414276-00

PATIENT
  Age: 39 Year
  Sex: Male
  Weight: 105 kg

DRUGS (1)
  1. DUODOPA [Suspect]
     Active Substance: CARBIDOPA\LEVODOPA
     Indication: PARKINSON^S DISEASE
     Route: 050

REACTIONS (9)
  - Peritonitis [Recovered/Resolved]
  - Peritonitis [Unknown]
  - Drug ineffective [Unknown]
  - Subcutaneous emphysema [Unknown]
  - Renal failure [Recovered/Resolved]
  - Cardio-respiratory arrest [Recovered/Resolved]
  - Post procedural infection [Unknown]
  - Septic shock [Recovered/Resolved]
  - Haemodynamic instability [Recovered/Resolved]

NARRATIVE: CASE EVENT DATE: 20191130
